FAERS Safety Report 5619532-3 (Version None)
Quarter: 2008Q1

REPORT INFORMATION
  Report Type: 
  Country: None (occurrence: None)
  Receive Date: 20080114
  Receipt Date: 20061117
  Transmission Date: 20080703
  Serious: Yes (Hospitalization)
  Sender: FDA-Public Use
  Company Number: A03200606946

PATIENT
  Age: 56 Year
  Sex: Male
  Weight: 158.73 kg

DRUGS (1)
  1. PLAVIX [Suspect]
     Indication: CARDIAC DISORDER
     Dosage: 75 MG QD - ORAL
     Route: 048

REACTIONS (1)
  - MYOCARDIAL INFARCTION [None]
